FAERS Safety Report 6146860-8 (Version None)
Quarter: 2009Q2

REPORT INFORMATION
  Report Type: 
  Country: None (occurrence: None)
  Receive Date: 20090407
  Receipt Date: 20090323
  Transmission Date: 20091009
  Serious: Yes (Other)
  Sender: FDA-Public Use
  Company Number: US-PFIZER INC-2009188382

PATIENT
  Sex: Female

DRUGS (15)
  1. LYRICA [Suspect]
     Indication: DIABETIC NEUROPATHY
     Dosage: FREQUENCY: 2X/DAY, EVERY DAY;
     Dates: start: 20060101
  2. LASIX [Suspect]
     Dosage: UNK
  3. CINNAMON [Suspect]
  4. ALLOPURINOL [Concomitant]
     Dosage: UNK
  5. VALSARTAN [Concomitant]
     Dosage: UNK
  6. FLEXERIL [Concomitant]
     Dosage: UNK
  7. INSULIN DETEMIR [Concomitant]
     Dosage: UNK
  8. NOVOLOG [Concomitant]
     Dosage: UNK
  9. MICRO-K [Concomitant]
     Dosage: UNK
  10. PRAVASTATIN [Concomitant]
     Dosage: UNK
  11. SYNTHROID [Concomitant]
     Dosage: UNK
  12. VITAMINS [Concomitant]
     Dosage: UNK
  13. PLAVIX [Concomitant]
     Dosage: UNK
  14. SENNA [Concomitant]
     Dosage: UNK
  15. ANTIHYPERTENSIVES [Concomitant]
     Dosage: UNK

REACTIONS (1)
  - OROPHARYNGEAL BLISTERING [None]
